FAERS Safety Report 7068877-1 (Version None)
Quarter: 2010Q4

REPORT INFORMATION
  Report Type: 
  Country: None (occurrence: None)
  Receive Date: 20101028
  Receipt Date: 20101019
  Transmission Date: 20110411
  Serious: Yes (Other)
  Sender: FDA-Public Use
  Company Number: US-SANOFI-AVENTIS-2010SA062757

PATIENT
  Age: 74 Year
  Sex: Female
  Weight: 70.45 kg

DRUGS (3)
  1. MULTAQ [Suspect]
     Indication: ATRIAL FIBRILLATION
     Route: 048
     Dates: start: 20101004
  2. GABAPENTIN [Concomitant]
     Indication: POST HERPETIC NEURALGIA
  3. WARFARIN SODIUM [Concomitant]
     Indication: ATRIAL FIBRILLATION

REACTIONS (3)
  - ASTHENIA [None]
  - ATRIAL FIBRILLATION [None]
  - HEART RATE IRREGULAR [None]
